FAERS Safety Report 13102388 (Version 1)
Quarter: 2017Q1

REPORT INFORMATION
  Report Type: Spontaneous
  Country: FR (occurrence: FR)
  Receive Date: 20170110
  Receipt Date: 20170110
  Transmission Date: 20170428
  Serious: Yes (Hospitalization)
  Sender: FDA-Public Use
  Company Number: FR-TEVA-725133ROM

PATIENT
  Age: 42 Year
  Sex: Female

DRUGS (5)
  1. METHADONE AP-HP 1.33 MG/ML [Suspect]
     Active Substance: METHADONE HYDROCHLORIDE
     Dates: start: 2016
  2. TERCIAN 100 MG [Suspect]
     Active Substance: CYAMEMAZINE
  3. XEROQUEL LP 400 MG [Suspect]
     Active Substance: QUETIAPINE FUMARATE
     Dates: start: 2016, end: 2016
  4. ATENOLOL TEVA 50 MG [Suspect]
     Active Substance: ATENOLOL
     Dates: start: 2016
  5. EFFEXOR [Suspect]
     Active Substance: VENLAFAXINE HYDROCHLORIDE
     Dosage: FORM : PROLONGED-RELEASE CAPSULE
     Dates: start: 2016, end: 2016

REACTIONS (6)
  - Suicide attempt [Unknown]
  - Confusional state [Recovered/Resolved]
  - Overdose [Recovered/Resolved]
  - Bradycardia [Recovered/Resolved]
  - Somnolence [Recovered/Resolved]
  - Intentional overdose [None]

NARRATIVE: CASE EVENT DATE: 2016
